FAERS Safety Report 12057790 (Version 2)
Quarter: 2016Q1

REPORT INFORMATION
  Report Type: Report from Study
  Country: BE (occurrence: BE)
  Receive Date: 20160210
  Receipt Date: 20160302
  Transmission Date: 20160526
  Serious: Yes (Other)
  Sender: FDA-Public Use
  Company Number: BE-BEH-2015055792

PATIENT
  Age: 40 Year
  Sex: Male

DRUGS (1)
  1. HIZENTRA [Suspect]
     Active Substance: HUMAN IMMUNOGLOBULIN G
     Indication: PRODUCT USED FOR UNKNOWN INDICATION
     Dosage: DOSE: 7G = 35ML/WEEK
     Route: 058
     Dates: start: 20141105

REACTIONS (5)
  - Fluid retention [Unknown]
  - Weight increased [Unknown]
  - Gastroenteritis [Recovering/Resolving]
  - Pneumonia [Recovering/Resolving]
  - Fatigue [Unknown]

NARRATIVE: CASE EVENT DATE: 201411
